FAERS Safety Report 15956503 (Version 2)
Quarter: 2019Q1

REPORT INFORMATION
  Report Type: Spontaneous
  Country: JP (occurrence: JP)
  Receive Date: 20190213
  Receipt Date: 20190221
  Transmission Date: 20190417
  Serious: Yes (Hospitalization)
  Sender: FDA-Public Use
  Company Number: JP-ROCHE-2264261

PATIENT
  Age: 39 Year
  Sex: Male

DRUGS (2)
  1. XOFLUZA [Suspect]
     Active Substance: BALOXAVIR MARBOXIL
     Indication: INFLUENZA
     Route: 048
     Dates: start: 20190122, end: 20190122
  2. CALONAL [Concomitant]
     Active Substance: ACETAMINOPHEN
     Route: 065
     Dates: start: 20190121

REACTIONS (1)
  - Acute encephalitis with refractory, repetitive partial seizures [Not Recovered/Not Resolved]

NARRATIVE: CASE EVENT DATE: 20190124
